FAERS Safety Report 8650541 (Version 2)
Quarter: 2012Q4

REPORT INFORMATION
  Report Type: 
  Country: IT (occurrence: IT)
  Receive Date: 20120705
  Receipt Date: 20120920
  Transmission Date: 20130627
  Serious: Yes (Hospitalization)
  Sender: FDA-Public Use
  Company Number: IT-UCBSA-060681

PATIENT
  Age: 66 Year
  Sex: Female

DRUGS (4)
  1. KEPPRA [Suspect]
     Indication: CONVULSION PROPHYLAXIS
     Dosage: DAILY DOSE 1000 MG, 60 TABLETS
     Route: 048
     Dates: start: 20120508, end: 20120527
  2. PHENOBARBITAL [Suspect]
     Indication: CONVULSION PROPHYLAXIS
     Dosage: DAILY DOSE 100 MG, 20 TABLETS
     Route: 048
     Dates: start: 20120508, end: 20120530
  3. LASIX [Concomitant]
     Dosage: DAILY DOSE 50 MG ; STRENGTH: 25 MG ; 30 TABLETS
     Route: 048
  4. CARDURA [Concomitant]
     Dosage: STRENGTH: 2 MG ; 30 TABLETS

REACTIONS (1)
  - Toxic skin eruption [Recovered/Resolved]
